FAERS Safety Report 18311727 (Version 1)
Quarter: 2020Q3

REPORT INFORMATION
  Report Type: Spontaneous
  Country: US (occurrence: US)
  Receive Date: 20200925
  Receipt Date: 20200925
  Transmission Date: 20201103
  Serious: Yes (Life-Threatening, Hospitalization)
  Sender: FDA-Public Use
  Company Number: US-MYLANLABS-2020M1081143

PATIENT
  Age: 27 Year
  Sex: Male

DRUGS (3)
  1. SODIUM CHLORIDE. [Suspect]
     Active Substance: SODIUM CHLORIDE
     Indication: HYPOTENSION
     Dosage: 2 LITER
     Route: 040
  2. NALOXONE [Suspect]
     Active Substance: NALOXONE
     Indication: CHEMICAL POISONING
     Dosage: 6 MILLIGRAM
     Route: 065
  3. ATROPINE. [Suspect]
     Active Substance: ATROPINE
     Indication: BRADYCARDIA
     Dosage: 1 MILLIGRAM
     Route: 065

REACTIONS (1)
  - Drug ineffective [Unknown]
